FAERS Safety Report 7954577-X (Version None)
Quarter: 2011Q4

REPORT INFORMATION
  Report Type: 
  Country: None (occurrence: None)
  Receive Date: 20111202
  Receipt Date: 20111125
  Transmission Date: 20120403
  Serious: Yes (Other)
  Sender: FDA-Public Use
  Company Number: PHHY2011DE104359

PATIENT
  Sex: Male

DRUGS (2)
  1. HOMEOPATHIC PREPARATIONS [Concomitant]
     Dosage: UNK UKN, UNK
  2. ILARIS [Suspect]
     Indication: MUCKLE-WELLS SYNDROME
     Dosage: 150 MG, FOR EVERY 8 WEEKS
     Route: 058
     Dates: start: 20100101

REACTIONS (3)
  - PALPITATIONS [None]
  - CARDIAC DISCOMFORT [None]
  - ARRHYTHMIA [None]
